FAERS Safety Report 7296320-6 (Version None)
Quarter: 2011Q1

REPORT INFORMATION
  Report Type: 
  Country: None (occurrence: None)
  Receive Date: 20110216
  Receipt Date: 20110204
  Transmission Date: 20110831
  Serious: Yes (Death, Other)
  Sender: FDA-Public Use
  Company Number: US-BRACCO-004991

PATIENT
  Sex: Female
  Weight: 83.45 kg

DRUGS (11)
  1. PROHANCE [Suspect]
     Indication: NUCLEAR MAGNETIC RESONANCE IMAGING
     Dates: start: 19950124, end: 19950124
  2. CONTRAST MEDIA [Concomitant]
     Indication: COMPUTERISED TOMOGRAM
     Dates: start: 20011119, end: 20011119
  3. VISIPAQUE [Concomitant]
     Indication: ANGIOGRAM
     Dates: start: 20020402, end: 20020402
  4. OMNISCAN [Suspect]
     Indication: VENOGRAM
     Dosage: 0.2 MMOL/KG
     Route: 042
     Dates: start: 20060624, end: 20060624
  5. OPTIRAY 350 [Concomitant]
     Indication: CATHETERISATION CARDIAC
     Dates: start: 20010403, end: 20010403
  6. CONTRAST MEDIA [Suspect]
     Indication: ANGIOGRAM
     Dates: start: 20011025, end: 20011025
  7. OMNISCAN [Suspect]
     Indication: ARTERIOGRAM
     Dosage: 0.2 MMOL/KG
     Route: 042
     Dates: start: 20060624, end: 20060624
  8. OMNISCAN [Suspect]
     Indication: ANGIOGRAM
     Dates: start: 19990105, end: 19990105
  9. OMNISCAN [Suspect]
     Indication: NUCLEAR MAGNETIC RESONANCE IMAGING
     Dates: start: 20040802, end: 20040802
  10. PROHANCE [Suspect]
     Indication: ARTERIOGRAM
     Dates: start: 19950124, end: 19950124
  11. THALIDOMIDE [Concomitant]
     Indication: PRODUCT USED FOR UNKNOWN INDICATION

REACTIONS (1)
  - NEPHROGENIC SYSTEMIC FIBROSIS [None]
